FAERS Safety Report 5977439-6 (Version None)
Quarter: 2008Q4

REPORT INFORMATION
  Report Type: 
  Country: None (occurrence: None)
  Receive Date: 20081203
  Receipt Date: 20081126
  Transmission Date: 20090506
  Serious: Yes (Hospitalization)
  Sender: FDA-Public Use
  Company Number: A0750990A

PATIENT
  Age: 65 Year
  Sex: Female
  Weight: 98.2 kg

DRUGS (3)
  1. AVANDIA [Suspect]
     Dosage: 8MG PER DAY
     Route: 065
     Dates: start: 20041201, end: 20070701
  2. METFORMIN HCL [Concomitant]
     Dates: start: 20030101, end: 20060101
  3. DIABETA [Concomitant]
     Dates: start: 19900101, end: 20060101

REACTIONS (6)
  - ARTERIOSCLEROSIS [None]
  - BLOOD CHOLESTEROL INCREASED [None]
  - CORONARY ARTERY DISEASE [None]
  - HEART INJURY [None]
  - MYOCARDIAL INFARCTION [None]
  - OBESITY [None]
